FAERS Safety Report 24254491 (Version 1)
Quarter: 2024Q3

REPORT INFORMATION
  Report Type: Spontaneous
  Country: US (occurrence: US)
  Receive Date: 20240827
  Receipt Date: 20240827
  Transmission Date: 20241016
  Serious: Yes (Other)
  Sender: SANDOZ
  Company Number: US-MLMSERVICE-20240705-PI120623-00218-1

PATIENT
  Age: 27 Year
  Sex: Male

DRUGS (54)
  1. AZACITIDINE [Suspect]
     Active Substance: AZACITIDINE
     Indication: Metastases to lymph nodes
     Dosage: 525 MG/M2 (75 MG/M2 ON DAYS 8-14)
     Route: 065
  2. AZACITIDINE [Suspect]
     Active Substance: AZACITIDINE
     Indication: Diffuse large B-cell lymphoma
  3. AZACITIDINE [Suspect]
     Active Substance: AZACITIDINE
     Indication: Diffuse large B-cell lymphoma
  4. AZACITIDINE [Suspect]
     Active Substance: AZACITIDINE
     Indication: Intestinal metastasis
  5. AZACITIDINE [Suspect]
     Active Substance: AZACITIDINE
     Indication: Metastases to chest wall
  6. AZACITIDINE [Suspect]
     Active Substance: AZACITIDINE
     Indication: Metastases to soft tissue
  7. CYCLOPHOSPHAMIDE [Suspect]
     Active Substance: CYCLOPHOSPHAMIDE
     Indication: Metastases to chest wall
     Dosage: 300 MG/M2 ON DAY 1
     Route: 065
  8. CYCLOPHOSPHAMIDE [Suspect]
     Active Substance: CYCLOPHOSPHAMIDE
     Indication: Diffuse large B-cell lymphoma
  9. CYCLOPHOSPHAMIDE [Suspect]
     Active Substance: CYCLOPHOSPHAMIDE
     Indication: Diffuse large B-cell lymphoma
  10. CYCLOPHOSPHAMIDE [Suspect]
     Active Substance: CYCLOPHOSPHAMIDE
     Indication: Intestinal metastasis
  11. CYCLOPHOSPHAMIDE [Suspect]
     Active Substance: CYCLOPHOSPHAMIDE
     Indication: Metastases to lymph nodes
  12. CYCLOPHOSPHAMIDE [Suspect]
     Active Substance: CYCLOPHOSPHAMIDE
     Indication: Metastases to soft tissue
  13. CYTARABINE [Suspect]
     Active Substance: CYTARABINE
     Indication: Metastases to chest wall
     Dosage: UNK
     Route: 037
  14. CYTARABINE [Suspect]
     Active Substance: CYTARABINE
     Indication: Diffuse large B-cell lymphoma
  15. CYTARABINE [Suspect]
     Active Substance: CYTARABINE
     Indication: Diffuse large B-cell lymphoma
  16. CYTARABINE [Suspect]
     Active Substance: CYTARABINE
     Indication: Intestinal metastasis
  17. CYTARABINE [Suspect]
     Active Substance: CYTARABINE
     Indication: Metastases to lymph nodes
  18. CYTARABINE [Suspect]
     Active Substance: CYTARABINE
     Indication: Metastases to soft tissue
  19. HYDROCORTISONE [Suspect]
     Active Substance: HYDROCORTISONE\HYDROCORTISONE ACETATE
     Indication: Metastases to lymph nodes
     Dosage: UNK
     Route: 037
  20. HYDROCORTISONE [Suspect]
     Active Substance: HYDROCORTISONE\HYDROCORTISONE ACETATE
     Indication: Diffuse large B-cell lymphoma
  21. HYDROCORTISONE [Suspect]
     Active Substance: HYDROCORTISONE\HYDROCORTISONE ACETATE
     Indication: Diffuse large B-cell lymphoma
  22. HYDROCORTISONE [Suspect]
     Active Substance: HYDROCORTISONE\HYDROCORTISONE ACETATE
     Indication: Intestinal metastasis
  23. HYDROCORTISONE [Suspect]
     Active Substance: HYDROCORTISONE\HYDROCORTISONE ACETATE
     Indication: Metastases to chest wall
  24. HYDROCORTISONE [Suspect]
     Active Substance: HYDROCORTISONE\HYDROCORTISONE ACETATE
     Indication: Metastases to soft tissue
  25. METHOTREXATE [Suspect]
     Active Substance: METHOTREXATE
     Indication: Intestinal metastasis
     Dosage: UNK
     Route: 037
  26. METHOTREXATE [Suspect]
     Active Substance: METHOTREXATE
     Indication: Diffuse large B-cell lymphoma
  27. METHOTREXATE [Suspect]
     Active Substance: METHOTREXATE
     Indication: Diffuse large B-cell lymphoma
  28. METHOTREXATE [Suspect]
     Active Substance: METHOTREXATE
     Indication: Metastases to chest wall
  29. METHOTREXATE [Suspect]
     Active Substance: METHOTREXATE
     Indication: Metastases to lymph nodes
  30. METHOTREXATE [Suspect]
     Active Substance: METHOTREXATE
     Indication: Metastases to soft tissue
  31. METHYLPREDNISOLONE [Suspect]
     Active Substance: METHYLPREDNISOLONE
     Indication: Metastases to soft tissue
     Dosage: 30 MG/M2 TWICE DAILY [BID] ON DAYS 1?7.
     Route: 065
  32. METHYLPREDNISOLONE [Suspect]
     Active Substance: METHYLPREDNISOLONE
     Indication: Diffuse large B-cell lymphoma
  33. METHYLPREDNISOLONE [Suspect]
     Active Substance: METHYLPREDNISOLONE
     Indication: Diffuse large B-cell lymphoma
  34. METHYLPREDNISOLONE [Suspect]
     Active Substance: METHYLPREDNISOLONE
     Indication: Intestinal metastasis
  35. METHYLPREDNISOLONE [Suspect]
     Active Substance: METHYLPREDNISOLONE
     Indication: Metastases to chest wall
  36. METHYLPREDNISOLONE [Suspect]
     Active Substance: METHYLPREDNISOLONE
     Indication: Metastases to lymph nodes
  37. OBINUTUZUMAB [Suspect]
     Active Substance: OBINUTUZUMAB
     Indication: Intestinal metastasis
     Dosage: 1000 MG ON DAYS 1, 8, 15, 22, AND 29
     Route: 065
  38. OBINUTUZUMAB [Suspect]
     Active Substance: OBINUTUZUMAB
     Indication: Diffuse large B-cell lymphoma
  39. OBINUTUZUMAB [Suspect]
     Active Substance: OBINUTUZUMAB
     Indication: Diffuse large B-cell lymphoma
  40. OBINUTUZUMAB [Suspect]
     Active Substance: OBINUTUZUMAB
     Indication: Metastases to chest wall
  41. OBINUTUZUMAB [Suspect]
     Active Substance: OBINUTUZUMAB
     Indication: Metastases to lymph nodes
  42. OBINUTUZUMAB [Suspect]
     Active Substance: OBINUTUZUMAB
     Indication: Metastases to soft tissue
  43. VENETOCLAX [Suspect]
     Active Substance: VENETOCLAX
     Indication: Intestinal metastasis
     Dosage: 400 MG ON DAYS 8-35
     Route: 065
  44. VENETOCLAX [Suspect]
     Active Substance: VENETOCLAX
     Indication: Diffuse large B-cell lymphoma
  45. VENETOCLAX [Suspect]
     Active Substance: VENETOCLAX
     Indication: Diffuse large B-cell lymphoma
  46. VENETOCLAX [Suspect]
     Active Substance: VENETOCLAX
     Indication: Metastases to chest wall
  47. VENETOCLAX [Suspect]
     Active Substance: VENETOCLAX
     Indication: Metastases to lymph nodes
  48. VENETOCLAX [Suspect]
     Active Substance: VENETOCLAX
     Indication: Metastases to soft tissue
  49. VINCRISTINE [Suspect]
     Active Substance: VINCRISTINE
     Indication: Metastases to lymph nodes
     Dosage: 1 MG/M2 ON DAY 1
     Route: 065
  50. VINCRISTINE [Suspect]
     Active Substance: VINCRISTINE
     Indication: Diffuse large B-cell lymphoma
  51. VINCRISTINE [Suspect]
     Active Substance: VINCRISTINE
     Indication: Diffuse large B-cell lymphoma
  52. VINCRISTINE [Suspect]
     Active Substance: VINCRISTINE
     Indication: Intestinal metastasis
  53. VINCRISTINE [Suspect]
     Active Substance: VINCRISTINE
     Indication: Metastases to chest wall
  54. VINCRISTINE [Suspect]
     Active Substance: VINCRISTINE
     Indication: Metastases to soft tissue

REACTIONS (7)
  - Gastric varices [Unknown]
  - Bacillus infection [Unknown]
  - Brain abscess [Unknown]
  - Clostridium difficile colitis [Unknown]
  - Bacterial sepsis [Unknown]
  - Endocarditis bacterial [Unknown]
  - Venous thrombosis [Unknown]
